FAERS Safety Report 23475044 (Version 1)
Quarter: 2024Q1

REPORT INFORMATION
  Report Type: Report from Study
  Country: US (occurrence: US)
  Receive Date: 20240204
  Receipt Date: 20240204
  Transmission Date: 20240410
  Serious: Yes (Hospitalization, Other)
  Sender: FDA-Public Use
  Company Number: US-EXELIXIS-CABO-23068587

PATIENT
  Age: 76 Year
  Sex: Female

DRUGS (22)
  1. CABOMETYX [Suspect]
     Active Substance: CABOZANTINIB S-MALATE
     Indication: Renal cancer
     Dosage: 40 MG, QD
     Route: 048
     Dates: start: 20221017
  2. CABOMETYX [Suspect]
     Active Substance: CABOZANTINIB S-MALATE
     Dosage: 40 MG, QD
     Route: 048
     Dates: end: 20231205
  3. SPIRONOLACTONE [Suspect]
     Active Substance: SPIRONOLACTONE
     Indication: Product used for unknown indication
     Dosage: UNK
  4. OPDIVO [Concomitant]
     Active Substance: NIVOLUMAB
  5. PYRIDOSTIGMINE [Concomitant]
     Active Substance: PYRIDOSTIGMINE
  6. REFRESH CLASSIC [Concomitant]
     Active Substance: POLYVINYL ALCOHOL\POVIDONE
  7. LOSARTAN POTASSIUM [Concomitant]
     Active Substance: LOSARTAN POTASSIUM
  8. CALCIUM [Concomitant]
     Active Substance: CALCIUM
  9. FLUDROCORTISONE [Concomitant]
     Active Substance: FLUDROCORTISONE
  10. AMLODIPINE BESYLATE [Concomitant]
     Active Substance: AMLODIPINE BESYLATE
  11. ASPIRIN [Concomitant]
     Active Substance: ASPIRIN
  12. CREON [Concomitant]
     Active Substance: PANCRELIPASE AMYLASE\PANCRELIPASE LIPASE\PANCRELIPASE PROTEASE
  13. FLUTICASONE [Concomitant]
     Active Substance: FLUTICASONE
  14. GLEEVEC [Concomitant]
     Active Substance: IMATINIB MESYLATE
  15. HUMALOG [Concomitant]
     Active Substance: INSULIN LISPRO
  16. HYDROCORTISONE [Concomitant]
     Active Substance: HYDROCORTISONE
  17. LANTUS [Concomitant]
     Active Substance: INSULIN GLARGINE
  18. LEVOTHYROXINE [Concomitant]
     Active Substance: LEVOTHYROXINE\LEVOTHYROXINE SODIUM
  19. LORATADINE [Concomitant]
     Active Substance: LORATADINE
  20. METOPROLOL [Concomitant]
     Active Substance: METOPROLOL
  21. PANTOPRAZOLE [Concomitant]
     Active Substance: PANTOPRAZOLE
  22. VITAMIN D [Concomitant]
     Active Substance: VITAMIN D NOS

REACTIONS (14)
  - Diarrhoea [Not Recovered/Not Resolved]
  - Blood glucose decreased [Unknown]
  - Blood pressure decreased [Unknown]
  - Fall [Unknown]
  - Bronchitis [Unknown]
  - Arthralgia [Unknown]
  - Blood potassium decreased [Unknown]
  - Fatigue [Unknown]
  - Urinary tract infection [Unknown]
  - Rhinorrhoea [Recovering/Resolving]
  - Memory impairment [Unknown]
  - Somnolence [Unknown]
  - Adverse reaction [Unknown]
  - Pain [Unknown]

NARRATIVE: CASE EVENT DATE: 20230901
